FAERS Safety Report 18563938 (Version 2)
Quarter: 2020Q4

REPORT INFORMATION
  Report Type: Spontaneous
  Country: DE (occurrence: DE)
  Receive Date: 20201201
  Receipt Date: 20201214
  Transmission Date: 20210114
  Serious: Yes (Other)
  Sender: FDA-Public Use
  Company Number: DE-SA-2020SA326291

PATIENT

DRUGS (9)
  1. OCREVUS [Suspect]
     Active Substance: OCRELIZUMAB
     Indication: RELAPSING MULTIPLE SCLEROSIS
     Dosage: UNK
     Dates: start: 202004
  2. OCREVUS [Suspect]
     Active Substance: OCRELIZUMAB
     Dosage: UNK
     Dates: start: 201910
  3. LEMTRADA [Suspect]
     Active Substance: ALEMTUZUMAB
     Indication: RELAPSING MULTIPLE SCLEROSIS
     Dosage: 12 UNK
     Route: 041
     Dates: start: 201902
  4. LEMTRADA [Suspect]
     Active Substance: ALEMTUZUMAB
     Dosage: 12 UNK
     Route: 041
     Dates: start: 201401
  5. LEMTRADA [Suspect]
     Active Substance: ALEMTUZUMAB
     Dosage: 12 UNK
     Route: 041
     Dates: start: 201501
  6. CORTISONE [Concomitant]
     Active Substance: CORTISONE
     Dosage: UNK
     Route: 065
     Dates: start: 201909
  7. LEMTRADA [Suspect]
     Active Substance: ALEMTUZUMAB
     Dosage: 12 UNK
     Route: 041
     Dates: start: 201701
  8. OCREVUS [Suspect]
     Active Substance: OCRELIZUMAB
     Dosage: UNK
     Dates: start: 202009
  9. METOPROLOL [METOPROLOL SUCCINATE] [Concomitant]
     Indication: MIGRAINE PROPHYLAXIS
     Dosage: 25 MG, BID
     Dates: start: 202001

REACTIONS (11)
  - Paraplegia [Not Recovered/Not Resolved]
  - Multiple sclerosis relapse [Unknown]
  - Gait disturbance [Unknown]
  - Computerised tomogram head abnormal [Recovering/Resolving]
  - Visual impairment [Unknown]
  - Spinal myelogram abnormal [Unknown]
  - Drug hypersensitivity [Unknown]
  - T-lymphocyte count decreased [Unknown]
  - Paraparesis [Not Recovered/Not Resolved]
  - Multiple sclerosis [Unknown]
  - B-lymphocyte count decreased [Unknown]

NARRATIVE: CASE EVENT DATE: 2019
